FAERS Safety Report 8436562-7 (Version None)
Quarter: 2012Q2

REPORT INFORMATION
  Report Type: 
  Country: None (occurrence: None)
  Receive Date: 20120614
  Receipt Date: 20120604
  Transmission Date: 20120825
  Serious: Yes (Hospitalization, Other)
  Sender: FDA-Public Use
  Company Number: US-FRI-1000031046

PATIENT
  Age: 73 Year
  Sex: Male

DRUGS (12)
  1. SPIRONOLACTONE [Concomitant]
     Dosage: 25 MG
  2. CARVEDILOL [Suspect]
     Dosage: 50 MG
  3. FUROSEMIDE [Concomitant]
     Dosage: 80 MG
  4. DILTIAZEM [Suspect]
     Dosage: 120 MG
  5. SIMVASTATIN [Concomitant]
     Dosage: 20 MG
  6. CALCIUM ACETATE [Concomitant]
     Dosage: 667 MG WITH MEALS
  7. DIGOXIN [Suspect]
     Dosage: 0.125 MG
  8. ISOSORBIDE DINITRATE [Concomitant]
     Dosage: 30 MG
  9. VALSARTAN [Concomitant]
     Dosage: 160 MG
  10. INSULIN [Concomitant]
     Route: 058
  11. AMLODIPINE [Concomitant]
     Dosage: 20 MG
  12. HYDRALAZINE HYDROCHLORIDE [Concomitant]
     Dosage: 30 MG

REACTIONS (13)
  - PNEUMONIA [None]
  - PULSELESS ELECTRICAL ACTIVITY [None]
  - TOXICITY TO VARIOUS AGENTS [None]
  - RESPIRATORY FAILURE [None]
  - ATRIOVENTRICULAR BLOCK FIRST DEGREE [None]
  - VENTRICULAR EXTRASYSTOLES [None]
  - ATRIOVENTRICULAR BLOCK COMPLETE [None]
  - RHYTHM IDIOVENTRICULAR [None]
  - BUNDLE BRANCH BLOCK LEFT [None]
  - RENAL FAILURE [None]
  - VENTRICULAR FIBRILLATION [None]
  - COUGH [None]
  - ELECTROCARDIOGRAM QT PROLONGED [None]
